FAERS Safety Report 4846081-2 (Version None)
Quarter: 2005Q4

REPORT INFORMATION
  Report Type: 
  Country: None (occurrence: None)
  Receive Date: 20051130
  Receipt Date: 20051114
  Transmission Date: 20060501
  Serious: Yes (Hospitalization)
  Sender: FDA-Public Use
  Company Number: FACT0500675

PATIENT
  Age: 32 Year
  Sex: Female
  Weight: 93.9 kg

DRUGS (1)
  1. FACTIVE [Suspect]
     Indication: RESPIRATORY TRACT INFECTION BACTERIAL
     Dosage: ORAL
     Route: 048
     Dates: start: 20051024, end: 20051030

REACTIONS (10)
  - ANGIONEUROTIC OEDEMA [None]
  - BLOOD PRESSURE DIASTOLIC INCREASED [None]
  - BLOOD PRESSURE SYSTOLIC INCREASED [None]
  - CHEST DISCOMFORT [None]
  - COUGH [None]
  - DRUG HYPERSENSITIVITY [None]
  - FEELING ABNORMAL [None]
  - HEART RATE INCREASED [None]
  - RESPIRATORY DISTRESS [None]
  - SKIN EXFOLIATION [None]
